FAERS Safety Report 8143228-X (Version None)
Quarter: 2012Q1

REPORT INFORMATION
  Report Type: 
  Country: None (occurrence: None)
  Receive Date: 20120217
  Receipt Date: 20120204
  Transmission Date: 20120608
  Serious: Yes (Other)
  Sender: FDA-Public Use
  Company Number: US-BAYER-2011-016159

PATIENT
  Age: 28 Year
  Sex: Female
  Weight: 130.61 kg

DRUGS (6)
  1. YASMIN [Suspect]
     Dosage: UNK
     Dates: start: 20080423, end: 20080616
  2. YASMIN [Suspect]
     Indication: ACNE
     Dosage: UNK
     Dates: start: 20070502, end: 20070628
  3. ZANTAC [Concomitant]
     Indication: DYSPEPSIA
     Dosage: 150 MG, QD
     Dates: start: 20070101
  4. HYDROCODONE [Concomitant]
     Indication: PAIN
     Dosage: UNK UNK, PRN
  5. DROSPIRENONE AND ETHINYL ESTRADIOL [Suspect]
     Indication: ACNE
     Dosage: UNK
     Dates: start: 20080717, end: 20090131
  6. WELLBUTRIN [Concomitant]
     Indication: DEPRESSION
     Dosage: 300 MG, QD

REACTIONS (3)
  - DEEP VEIN THROMBOSIS [None]
  - DEPRESSION [None]
  - MENTAL DISORDER [None]
